FAERS Safety Report 13219975 (Version 2)
Quarter: 2017Q1

REPORT INFORMATION
  Report Type: Report from Study
  Country: TR (occurrence: TR)
  Receive Date: 20170210
  Receipt Date: 20170220
  Transmission Date: 20170428
  Serious: Yes (Hospitalization)
  Sender: FDA-Public Use
  Company Number: TR-ALEXION PHARMACEUTICALS INC.-A201701384

PATIENT
  Age: 2 Year
  Sex: Female
  Weight: 11 kg

DRUGS (1)
  1. ENB-0040 [Suspect]
     Active Substance: ASFOTASE ALFA
     Indication: HYPOPHOSPHATASIA
     Dosage: 6 MG/KG/WEEK
     Route: 058
     Dates: start: 20170201

REACTIONS (1)
  - Febrile convulsion [Recovered/Resolved]

NARRATIVE: CASE EVENT DATE: 20170208
